FAERS Safety Report 5356682-3 (Version None)
Quarter: 2007Q2

REPORT INFORMATION
  Report Type: 
  Country: None (occurrence: None)
  Receive Date: 20070614
  Receipt Date: 20070604
  Transmission Date: 20071010
  Serious: Yes (Hospitalization, Other)
  Sender: FDA-Public Use
  Company Number: US-NOVOPROD-258436

PATIENT
  Sex: Female
  Weight: 72.109 kg

DRUGS (16)
  1. ACTIVELLA [Suspect]
     Indication: MENOPAUSAL SYMPTOMS
     Dosage: UNKNOWN
     Route: 048
     Dates: start: 19990801, end: 20021001
  2. PREMARIN [Suspect]
     Indication: MENOPAUSAL SYMPTOMS
     Dosage: .625 MG, UNK
     Dates: start: 19870101, end: 19980101
  3. PROVERA [Suspect]
     Indication: MENOPAUSAL SYMPTOMS
     Dosage: 10 MG, UNK
     Dates: start: 19940401, end: 19980801
  4. PROVERA [Suspect]
     Dosage: 2.5 MG, UNK
     Dates: start: 19980801, end: 19981101
  5. PREMPRO [Suspect]
     Indication: MENOPAUSAL SYMPTOMS
     Dosage: .625 MG / 2.5MG, UNK
     Dates: start: 19980401, end: 19981101
  6. PREMPRO [Suspect]
     Dosage: .625 MG /2.5 MG
     Dates: start: 19990701, end: 19991101
  7. PREMPRO [Suspect]
     Dosage: .625 MG/ 0.5MG
     Dates: start: 19981101, end: 19990701
  8. PREMPRO [Suspect]
     Dosage: .625 MG/.05 MG
     Dates: start: 19991101, end: 20010401
  9. MPA [Suspect]
     Indication: MENOPAUSAL SYMPTOMS
     Dosage: UNKNOWN
     Dates: start: 19870101, end: 20010101
  10. NAPROSYN [Concomitant]
     Dates: start: 19980101, end: 19990101
  11. CELEBREX [Concomitant]
     Dates: start: 19990101, end: 20060101
  12. IRON [Concomitant]
  13. GLUCOSAMINE [Concomitant]
  14. VITAMIN E                          /00110501/ [Concomitant]
  15. ELAVIL                             /00002202/ [Concomitant]
     Dosage: 25 MG, UNK
     Dates: start: 20020101
  16. FOSAMAX [Concomitant]
     Dates: start: 20050601

REACTIONS (1)
  - BREAST CANCER [None]
